FAERS Safety Report 25144515 (Version 1)
Quarter: 2025Q2

REPORT INFORMATION
  Report Type: Spontaneous
  Country: US (occurrence: US)
  Receive Date: 20250401
  Receipt Date: 20250401
  Transmission Date: 20250717
  Serious: No
  Sender: ALEXION PHARMACEUTICALS
  Company Number: US-ASTRAZENECA-202503GLO027497US

PATIENT
  Age: 66 Year

DRUGS (1)
  1. BUDESONIDE [Suspect]
     Active Substance: BUDESONIDE
     Indication: Sinusitis

REACTIONS (3)
  - Head discomfort [Unknown]
  - Somnolence [Unknown]
  - Product use in unapproved indication [Unknown]
